FAERS Safety Report 4356685-1 (Version None)
Quarter: 2004Q2

REPORT INFORMATION
  Report Type: 
  Country: None (occurrence: None)
  Receive Date: 20040507
  Receipt Date: 20040419
  Transmission Date: 20050107
  Serious: Yes (Hospitalization, Disabling, Other)
  Sender: FDA-Public Use
  Company Number: USA040465263

PATIENT
  Age: 53 Year
  Sex: Male
  Weight: 88 kg

DRUGS (7)
  1. HUMALOG [Suspect]
     Indication: DIABETES MELLITUS
     Dates: start: 19980101
  2. HUMULIN N [Suspect]
     Indication: DIABETES MELLITUS
     Dates: end: 19980101
  3. HUMULIN R [Suspect]
     Indication: DIABETES MELLITUS
     Dates: end: 19980101
  4. HUMULIN 70/30 [Suspect]
     Indication: DIABETES MELLITUS
     Dates: start: 19930101
  5. NEORAL [Concomitant]
  6. CELLCEPT [Concomitant]
  7. PREDNISONE [Concomitant]

REACTIONS (9)
  - BLOOD GLUCOSE INCREASED [None]
  - CATARACT [None]
  - DIABETIC RETINOPATHY [None]
  - DIALYSIS [None]
  - FATIGUE [None]
  - LEG AMPUTATION [None]
  - RENAL FAILURE [None]
  - RENAL TRANSPLANT [None]
  - WEIGHT INCREASED [None]
